FAERS Safety Report 5150921-X (Version None)
Quarter: 2006Q4

REPORT INFORMATION
  Report Type: 
  Country: None (occurrence: None)
  Receive Date: 20061114
  Receipt Date: 20061106
  Transmission Date: 20070319
  Serious: Yes (Death)
  Sender: FDA-Public Use
  Company Number: FR-MERCK-0611FRA00009

PATIENT
  Age: 0 Day

DRUGS (6)
  1. COSOPT [Suspect]
     Indication: GLAUCOMA
     Route: 064
  2. CLINDAMYCIN HYDROCHLORIDE [Suspect]
     Indication: OSTEITIS
     Route: 064
     Dates: start: 20060415
  3. RAMIPRIL [Suspect]
     Indication: DIABETIC NEPHROPATHY
     Route: 064
  4. OFLOXACIN [Suspect]
     Indication: OSTEITIS
     Route: 064
     Dates: start: 20060415
  5. INSULIN [Suspect]
     Indication: DIABETES MELLITUS INSULIN-DEPENDENT
     Route: 064
  6. LATANOPROST [Suspect]
     Indication: GLAUCOMA
     Route: 064

REACTIONS (3)
  - ABORTION SPONTANEOUS [None]
  - INTRA-UTERINE DEATH [None]
  - TWIN PREGNANCY [None]
